FAERS Safety Report 10222792 (Version 1)
Quarter: 2014Q2

REPORT INFORMATION
  Report Type: Spontaneous
  Country: TR (occurrence: TR)
  Receive Date: 20140606
  Receipt Date: 20140606
  Transmission Date: 20141212
  Serious: Yes (Life-Threatening)
  Sender: FDA-Public Use
  Company Number: TR-ASTRAZENECA-2014SE39666

PATIENT
  Age: 19 Year
  Sex: Female

DRUGS (1)
  1. BELOC ZOK [Suspect]
     Dosage: 8 TABLETS SUCCESSIVELY, ONCE/SINGLE ADMINISTRATION AROUND 10 DAYS AGO
     Route: 048

REACTIONS (2)
  - Suicide attempt [Recovered/Resolved]
  - Intentional product misuse [Unknown]
